FAERS Safety Report 6308937-3 (Version None)
Quarter: 2009Q3

REPORT INFORMATION
  Report Type: 
  Country: None (occurrence: None)
  Receive Date: 20090813
  Receipt Date: 20090615
  Transmission Date: 20100115
  Serious: No
  Sender: FDA-Public Use
  Company Number: US-ALLERGAN-0908343US

PATIENT
  Sex: Male

DRUGS (2)
  1. COMBIGAN [Suspect]
     Indication: INTRAOCULAR PRESSURE TEST
     Dosage: UNK, BID
     Route: 047
  2. LUMIGAN [Concomitant]
     Indication: INTRAOCULAR PRESSURE TEST
     Dosage: UNK, QHS
     Route: 047

REACTIONS (6)
  - ERYTHEMA OF EYELID [None]
  - EYE IRRITATION [None]
  - EYE PRURITUS [None]
  - EYELID IRRITATION [None]
  - OCULAR DISCOMFORT [None]
  - PHOTOPHOBIA [None]
